FAERS Safety Report 5319102-0 (Version None)
Quarter: 2007Q2

REPORT INFORMATION
  Report Type: 
  Country: None (occurrence: None)
  Receive Date: 20070508
  Receipt Date: 20070502
  Transmission Date: 20071010
  Serious: Yes (Hospitalization)
  Sender: FDA-Public Use
  Company Number: A0649772A

PATIENT
  Age: 45 Year
  Sex: Female
  Weight: 76.7 kg

DRUGS (2)
  1. LAPATINIB [Suspect]
     Dosage: 1250MG PER DAY
     Route: 048
     Dates: start: 20070228
  2. CAPECITABINE [Suspect]
     Dosage: 3800MG PER DAY
     Route: 048
     Dates: start: 20070228

REACTIONS (2)
  - DIARRHOEA [None]
  - PYREXIA [None]
